FAERS Safety Report 13068461 (Version 1)
Quarter: 2016Q4

REPORT INFORMATION
  Report Type: Spontaneous
  Country: US (occurrence: US)
  Receive Date: 20161228
  Receipt Date: 20161228
  Transmission Date: 20170207
  Serious: Yes (Other)
  Sender: FDA-Public Use
  Company Number: US-JNJFOC-20161220335

PATIENT
  Sex: Male

DRUGS (2)
  1. ASACOL [Concomitant]
     Active Substance: MESALAMINE
     Route: 065
  2. REMICADE [Suspect]
     Active Substance: INFLIXIMAB
     Indication: COLITIS
     Route: 042

REACTIONS (4)
  - Thrombosis in device [Unknown]
  - Off label use [Unknown]
  - Platelet count increased [Unknown]
  - Product use issue [Unknown]
